FAERS Safety Report 15833501 (Version 2)
Quarter: 2020Q2

REPORT INFORMATION
  Report Type: Spontaneous
  Country: US (occurrence: US)
  Receive Date: 20190116
  Receipt Date: 20200612
  Transmission Date: 20200713
  Serious: No
  Sender: FDA-Public Use
  Company Number: US-SA-2019SA009221

PATIENT

DRUGS (10)
  1. DUPIXENT [Suspect]
     Active Substance: DUPILUMAB
     Dosage: 300MG/2ML, QOW
     Route: 058
     Dates: start: 20200226
  2. AMOXICILLIN. [Concomitant]
     Active Substance: AMOXICILLIN
  3. ZOLPIDEM [Concomitant]
     Active Substance: ZOLPIDEM TARTRATE
  4. CLINDAMYCIN. [Concomitant]
     Active Substance: CLINDAMYCIN
  5. NYSTATIN. [Concomitant]
     Active Substance: NYSTATIN
  6. CHLORHEX [Concomitant]
     Active Substance: CHLORHEXIDINE GLUCONATE
  7. DUPIXENT [Suspect]
     Active Substance: DUPILUMAB
     Indication: DERMATITIS ATOPIC
     Dosage: 300 MG, QOW
     Route: 058
     Dates: start: 20180515
  8. LAMOTRIGINE. [Concomitant]
     Active Substance: LAMOTRIGINE
  9. TRAZODONE [Concomitant]
     Active Substance: TRAZODONE HYDROCHLORIDE
  10. METHOCARBAMOL. [Concomitant]
     Active Substance: METHOCARBAMOL

REACTIONS (4)
  - Vaginal infection [Unknown]
  - Oral herpes [Unknown]
  - Condition aggravated [Unknown]
  - Dyspnoea [Not Recovered/Not Resolved]

NARRATIVE: CASE EVENT DATE: 20200602
